FAERS Safety Report 24272649 (Version 1)
Quarter: 2024Q3

REPORT INFORMATION
  Report Type: Report from Study
  Country: US (occurrence: US)
  Receive Date: 20240902
  Receipt Date: 20240902
  Transmission Date: 20241016
  Serious: Yes (Other)
  Sender: ABBVIE
  Company Number: US-ABBVIE-5709874

PATIENT
  Sex: Male
  Weight: 111 kg

DRUGS (10)
  1. RINVOQ [Suspect]
     Active Substance: UPADACITINIB
     Indication: Dermatitis atopic
     Route: 048
     Dates: start: 202401, end: 202404
  2. RINVOQ [Suspect]
     Active Substance: UPADACITINIB
     Indication: Dermatitis atopic
     Route: 048
  3. EFFEXOR [Concomitant]
     Active Substance: VENLAFAXINE HYDROCHLORIDE
     Indication: Depression
     Dosage: XR
     Route: 048
     Dates: end: 2008
  4. DESIPRAMINE [Concomitant]
     Active Substance: DESIPRAMINE
     Indication: Depression
     Route: 048
     Dates: end: 2008
  5. BYSTOLIC [Concomitant]
     Active Substance: NEBIVOLOL HYDROCHLORIDE
     Indication: Blood pressure measurement
     Route: 048
     Dates: end: 2013
  6. BUPROPION [Concomitant]
     Active Substance: BUPROPION
     Indication: Depression
     Route: 048
     Dates: end: 2008
  7. LEXAPRO [Concomitant]
     Active Substance: ESCITALOPRAM OXALATE
     Indication: Depression
     Route: 048
     Dates: end: 2009
  8. TRAMADOL [Concomitant]
     Active Substance: TRAMADOL\TRAMADOL HYDROCHLORIDE
     Indication: Back pain
     Route: 048
     Dates: end: 2023
  9. ZETIA [Concomitant]
     Active Substance: EZETIMIBE
     Indication: Blood cholesterol
     Route: 048
     Dates: end: 202305
  10. ATORVASTATIN [Concomitant]
     Active Substance: ATORVASTATIN
     Indication: Blood cholesterol
     Route: 048
     Dates: end: 202307

REACTIONS (2)
  - Chest discomfort [Recovered/Resolved]
  - Fatigue [Recovered/Resolved]

NARRATIVE: CASE EVENT DATE: 20240101
